FAERS Safety Report 9458358 (Version 1)
Quarter: 2013Q3

REPORT INFORMATION
  Report Type: Spontaneous
  Country: BR (occurrence: BR)
  Receive Date: 20130814
  Receipt Date: 20130814
  Transmission Date: 20140515
  Serious: Yes (Other)
  Sender: FDA-Public Use
  Company Number: BR-PFIZER INC-2013232506

PATIENT
  Age: 31 Year
  Sex: Female
  Weight: 63 kg

DRUGS (1)
  1. PREMARIN [Suspect]
     Dosage: UNK
     Dates: start: 201307

REACTIONS (1)
  - Haemorrhage [Not Recovered/Not Resolved]
